FAERS Safety Report 9243250 (Version 1)
Quarter: 2013Q2

REPORT INFORMATION
  Report Type: Report from Study
  Country: AT (occurrence: AT)
  Receive Date: 20130419
  Receipt Date: 20130419
  Transmission Date: 20140414
  Serious: Yes (Congenital Anomaly)
  Sender: FDA-Public Use
  Company Number: PHHY2013AT038470

PATIENT
  Sex: 0

DRUGS (4)
  1. TEGRETOL [Suspect]
     Indication: EPILEPSY
     Dosage: 1200 MG, DAILY
     Route: 064
  2. VALPROIC ACID [Suspect]
     Indication: EPILEPSY
     Route: 064
  3. LAMOTRIGINE [Suspect]
     Indication: EPILEPSY
     Route: 064
  4. TOPIRAMATE [Suspect]
     Indication: EPILEPSY
     Route: 064

REACTIONS (2)
  - Spina bifida [Unknown]
  - Foetal exposure during pregnancy [Unknown]
